FAERS Safety Report 11666828 (Version 1)
Quarter: 2015Q4

REPORT INFORMATION
  Report Type: Spontaneous
  Country: US (occurrence: US)
  Receive Date: 20151027
  Receipt Date: 20151027
  Transmission Date: 20160304
  Serious: No
  Sender: FDA-Public Use
  Company Number: US-ELI_LILLY_AND_COMPANY-US201002002965

PATIENT
  Age: 60 Year
  Sex: Female

DRUGS (1)
  1. FORTEO [Suspect]
     Active Substance: TERIPARATIDE
     Indication: OSTEOPOROSIS
     Dosage: 20 UG, DAILY (1/D)
     Dates: start: 201001

REACTIONS (11)
  - Back pain [Recovered/Resolved]
  - Rosacea [Unknown]
  - Middle insomnia [Unknown]
  - Dyspnoea [Not Recovered/Not Resolved]
  - Pigmentation disorder [Recovered/Resolved]
  - Fatigue [Recovering/Resolving]
  - Nausea [Unknown]
  - Rash pruritic [Unknown]
  - Dizziness [Unknown]
  - Palpitations [Not Recovered/Not Resolved]
  - Headache [Unknown]

NARRATIVE: CASE EVENT DATE: 201001
